FAERS Safety Report 22161280 (Version 2)
Quarter: 2023Q2

REPORT INFORMATION
  Report Type: Spontaneous
  Country: None (occurrence: US)
  Receive Date: 20230331
  Receipt Date: 20230421
  Transmission Date: 20230722
  Serious: Yes (Other)
  Sender: FDA-Public Use
  Company Number: US-Vero Biotech-2139762

PATIENT
  Sex: Male

DRUGS (2)
  1. GENOSYL [Suspect]
     Active Substance: NITRIC OXIDE
     Indication: Pulmonary hypertension
     Route: 055
     Dates: start: 20230105
  2. GENOSYL [Suspect]
     Active Substance: NITRIC OXIDE

REACTIONS (4)
  - Cardio-respiratory arrest [Unknown]
  - Device delivery system issue [None]
  - Heart and lung transplant [Unknown]
  - Bronchial secretion retention [Unknown]

NARRATIVE: CASE EVENT DATE: 20230316
